FAERS Safety Report 4296428-3 (Version None)
Quarter: 2004Q1

REPORT INFORMATION
  Report Type: 
  Country: None (occurrence: None)
  Receive Date: 20040217
  Receipt Date: 20030901
  Transmission Date: 20041129
  Serious: Yes (Hospitalization)
  Sender: FDA-Public Use
  Company Number: 200318541GDDC

PATIENT
  Age: 65 Year
  Sex: Male
  Weight: 62 kg

DRUGS (1)
  1. UNKNOWN DRUG [Suspect]
     Indication: PROGRESSIVE SUPRANUCLEAR PALSY
     Route: 048
     Dates: start: 20010111, end: 20030829

REACTIONS (5)
  - BRADYKINESIA [None]
  - FALL [None]
  - HYPERTONIA [None]
  - PROGRESSIVE SUPRANUCLEAR PALSY [None]
  - TACHYCARDIA [None]
